FAERS Safety Report 9517449 (Version 1)
Quarter: 2013Q3

REPORT INFORMATION
  Report Type: Spontaneous
  Country: GB (occurrence: GB)
  Receive Date: 20130911
  Receipt Date: 20130911
  Transmission Date: 20140515
  Serious: Yes (Other)
  Sender: FDA-Public Use
  Company Number: GB-WATSON-2013-16296

PATIENT
  Sex: 0

DRUGS (2)
  1. NAPROXEN (UNKNOWN) [Suspect]
     Indication: INFLAMMATION
     Dosage: 250 MG, BID
     Route: 048
  2. CO-CODAMOL [Concomitant]
     Indication: PRODUCT USED FOR UNKNOWN INDICATION
     Dosage: UNK
     Route: 065

REACTIONS (6)
  - Muscle spasms [Recovered/Resolved]
  - Malaise [Unknown]
  - Somnolence [Unknown]
  - Fatigue [Unknown]
  - Flatulence [Unknown]
  - Depression [Unknown]
